FAERS Safety Report 10522694 (Version 2)
Quarter: 2014Q4

REPORT INFORMATION
  Report Type: Spontaneous
  Country: PT (occurrence: PT)
  Receive Date: 20141016
  Receipt Date: 20141016
  Transmission Date: 20150528
  Serious: Yes (Death, Hospitalization)
  Sender: FDA-Public Use
  Company Number: PT-PFIZER INC-2014257098

PATIENT
  Age: 42 Year
  Sex: Male

DRUGS (15)
  1. CEFTRIAXONE SANDOZ [Concomitant]
     Active Substance: CEFTRIAXONE
     Indication: ENDOCARDITIS
     Dosage: 1 G, 1X/DAY
     Route: 042
     Dates: start: 20140826
  2. DIAZEPAM LABESFAL [Concomitant]
     Indication: ANXIETY
     Dosage: 10 MG, 3X/DAY (8/8H)
     Dates: start: 20140828, end: 20140828
  3. MORPHINE [Concomitant]
     Active Substance: MORPHINE
     Indication: PAIN
     Dosage: 50 MG, 1X/DAY
     Route: 042
     Dates: start: 20140828
  4. ZYVOXID [Suspect]
     Active Substance: LINEZOLID
     Indication: STAPHYLOCOCCAL INFECTION
  5. GLYPRESSINE [Concomitant]
     Indication: HYPERTENSION
     Dosage: 2 MG, 1X/DAY
     Route: 042
     Dates: start: 20140828, end: 20140828
  6. VANCOMYCIN [Concomitant]
     Active Substance: VANCOMYCIN
     Indication: STAPHYLOCOCCAL INFECTION
  7. RINGER-LACTATE SOLUTION [Concomitant]
     Indication: ELECTROLYTE IMBALANCE
     Dosage: 1000 ML, 1X/DAY
     Dates: start: 20140831
  8. SODIUM CHLORIDE. [Concomitant]
     Active Substance: SODIUM CHLORIDE
     Indication: DEHYDRATION
     Dosage: 1000 ML, 1X/DAY
     Route: 042
     Dates: start: 20140827
  9. ELECTROLYTES NOS/GLUCOSE [Concomitant]
     Indication: ELECTROLYTE IMBALANCE
     Dosage: 1000 ML, 1X/DAY
     Route: 042
     Dates: start: 20140831
  10. ZYVOXID [Suspect]
     Active Substance: LINEZOLID
     Indication: ENDOCARDITIS
     Dosage: 1200 MG, 1X/DAY
     Route: 042
     Dates: start: 20140828
  11. FLUCONAZOLE HIKMA [Concomitant]
     Indication: SKIN INFECTION
     Dosage: 16.8 MG, 1X/DAY
     Route: 042
     Dates: start: 20140827
  12. L-NORADRENALIDE BRAUN [Concomitant]
     Indication: HYPERTENSION
     Dosage: 10 MG, 1X/DAY
     Route: 042
     Dates: start: 20140827, end: 20140831
  13. GLUCOSE [Concomitant]
     Active Substance: DEXTROSE
     Indication: ELECTROLYTE IMBALANCE
     Dosage: 40 ML, 1X/DAY
     Route: 042
     Dates: start: 20140827
  14. VANCOMYCIN [Concomitant]
     Active Substance: VANCOMYCIN
     Indication: ENDOCARDITIS
     Dosage: 1 DF, 1X/DAY
     Route: 042
     Dates: start: 20140827, end: 20140827
  15. HIDROCORTISONA GENERIS [Concomitant]
     Indication: PROPHYLAXIS
     Dosage: 50 MG, 4X/DAY (6/6H)
     Route: 042
     Dates: start: 20140827, end: 20140901

REACTIONS (2)
  - Thrombocytopenia [Fatal]
  - Multi-organ failure [Fatal]

NARRATIVE: CASE EVENT DATE: 201409
